FAERS Safety Report 6030549-X (Version None)
Quarter: 2009Q1

REPORT INFORMATION
  Report Type: 
  Country: None (occurrence: None)
  Receive Date: 20090105
  Receipt Date: 20090105
  Transmission Date: 20090719
  Serious: No
  Sender: FDA-Public Use
  Company Number: None

PATIENT
  Age: 61 Year
  Sex: Female
  Weight: 65.7716 kg

DRUGS (1)
  1. PRILOSEC OTC [Suspect]

REACTIONS (3)
  - FATIGUE [None]
  - GAIT DISTURBANCE [None]
  - PAIN [None]
